FAERS Safety Report 9400396 (Version 1)
Quarter: 2013Q3

REPORT INFORMATION
  Report Type: Spontaneous
  Country: RU (occurrence: RU)
  Receive Date: 20130715
  Receipt Date: 20130715
  Transmission Date: 20140515
  Serious: Yes (Death)
  Sender: FDA-Public Use
  Company Number: RU-BRISTOL-MYERS SQUIBB COMPANY-19099654

PATIENT
  Sex: 0

DRUGS (2)
  1. ERBITUX [Suspect]
     Indication: COLORECTAL CANCER METASTATIC
     Route: 042
  2. XELODA [Suspect]
     Indication: COLORECTAL CANCER METASTATIC
     Route: 048

REACTIONS (3)
  - Myocardial ischaemia [Fatal]
  - Cardiac failure [Fatal]
  - Angina pectoris [Fatal]
